FAERS Safety Report 8744016 (Version 2)
Quarter: 2012Q4

REPORT INFORMATION
  Report Type: 
  Country: US (occurrence: US)
  Receive Date: 20120824
  Receipt Date: 20120914
  Transmission Date: 20130627
  Serious: Yes (Hospitalization)
  Sender: FDA-Public Use
  Company Number: US-ASTRAZENECA-2012SE57936

PATIENT
  Age: 50 Year
  Sex: Female

DRUGS (4)
  1. SYMBICORT PMDI [Suspect]
     Route: 055
  2. NEXIUM [Suspect]
     Route: 048
  3. CRESTOR [Suspect]
     Route: 048
  4. SPIRIVA [Concomitant]

REACTIONS (12)
  - Chest pain [Unknown]
  - Anxiety [Unknown]
  - Malaise [Unknown]
  - Diabetes mellitus [Unknown]
  - Lung disorder [Unknown]
  - Cardiac disorder [Unknown]
  - Gastrooesophageal sphincter insufficiency [Unknown]
  - Pain [Unknown]
  - Aphagia [Unknown]
  - Abdominal pain upper [Unknown]
  - Dyspnoea [Unknown]
  - Drug dose omission [Unknown]
